FAERS Safety Report 5620017-9 (Version None)
Quarter: 2008Q1

REPORT INFORMATION
  Report Type: 
  Country: None (occurrence: None)
  Receive Date: 20080208
  Receipt Date: 20080201
  Transmission Date: 20080703
  Serious: Yes (Hospitalization)
  Sender: FDA-Public Use
  Company Number: HR-ABBOTT-08P-216-0434333-00

PATIENT
  Age: 7 Year
  Sex: Male

DRUGS (3)
  1. SEVORANE LIQUID FOR INHALATION [Suspect]
     Indication: ANAESTHESIA
     Route: 055
     Dates: start: 20080111, end: 20080111
  2. ALFENTANIL HYDROCHLORIDE [Concomitant]
     Indication: ANAESTHESIA
  3. NITRAZEPAM [Concomitant]
     Indication: ANAESTHESIA

REACTIONS (1)
  - DELIRIUM [None]
